FAERS Safety Report 9012708 (Version 1)
Quarter: 2013Q1

REPORT INFORMATION
  Report Type: Report from Study
  Country: JP (occurrence: JP)
  Receive Date: 20130114
  Receipt Date: 20130114
  Transmission Date: 20140127
  Serious: Yes (Other)
  Sender: FDA-Public Use
  Company Number: JP-009507513-2012SP034970

PATIENT
  Age: 68 Year
  Sex: Female
  Weight: 58 kg

DRUGS (16)
  1. PEGINTRON [Suspect]
     Indication: CHRONIC HEPATITIS C
     Dosage: 1.37 MICROGRAM PER KILOGRAM, QW
     Route: 058
     Dates: start: 20120305, end: 20120417
  2. PEGINTRON [Suspect]
     Dosage: 1.03 MICROGRAM PER KILOGRAM, QW
     Route: 058
     Dates: start: 20120426
  3. PEGINTRON [Suspect]
     Dosage: 0.86 MICROGRAM PER KILOGRAM, UNK
     Route: 058
     Dates: start: 20120703
  4. REBETOL [Suspect]
     Indication: CHRONIC HEPATITIS C
     Dosage: 400 MG, QD
     Route: 048
     Dates: start: 20120305
  5. TELAVIC [Suspect]
     Indication: CHRONIC HEPATITIS C
     Dosage: 1500 MG, QD
     Route: 048
     Dates: start: 20120305, end: 20120423
  6. ANTIVIRAL (UNSPECIFIED) [Suspect]
     Indication: HEPATITIS C
     Dosage: 1500 MG, QD
     Route: 048
     Dates: start: 20120305, end: 20120423
  7. EVAMYL [Concomitant]
     Indication: PROPHYLAXIS
     Dosage: 1 MG/DAY AS NEEDED
     Route: 048
     Dates: start: 20120305
  8. MUCOSTA [Concomitant]
     Indication: PROPHYLAXIS
     Dosage: AS NEEDED
     Route: 048
     Dates: start: 20120305
  9. ZYLORIC [Concomitant]
     Indication: PROPHYLAXIS
     Dosage: DURATION: 27 DAYS
     Route: 048
     Dates: start: 20120307, end: 20120402
  10. LOXONIN [Concomitant]
     Indication: PRODUCT USED FOR UNKNOWN INDICATION
     Dosage: AS NEEDED
     Route: 048
     Dates: start: 20120305
  11. ALLELOCK [Concomitant]
     Indication: PRODUCT USED FOR UNKNOWN INDICATION
     Dosage: 10 MG, QD
     Route: 065
     Dates: start: 20120315, end: 20120325
  12. ZYLORIC [Concomitant]
     Indication: PRODUCT USED FOR UNKNOWN INDICATION
     Dosage: 200 MG, QD
     Route: 065
     Dates: start: 20120403, end: 20120507
  13. ALLELOCK [Concomitant]
     Indication: PRODUCT USED FOR UNKNOWN INDICATION
     Dosage: 10 MG, QD
     Route: 065
     Dates: start: 20120410, end: 20120423
  14. HIRUDOID SOFT [Concomitant]
     Indication: PRODUCT USED FOR UNKNOWN INDICATION
     Dosage: 2 TO 3 TIMES
     Route: 065
     Dates: start: 20120417, end: 20120501
  15. CELESTODERM V [Concomitant]
     Indication: PRODUCT USED FOR UNKNOWN INDICATION
     Dosage: 2 TO 3 TIMES
     Route: 065
     Dates: start: 20120417, end: 20120501
  16. ALLELOCK [Concomitant]
     Indication: PRODUCT USED FOR UNKNOWN INDICATION
     Dosage: 20 MG, QD
     Route: 048
     Dates: start: 20120424, end: 20120514

REACTIONS (1)
  - Rash [Recovering/Resolving]
